FAERS Safety Report 8024297-4 (Version None)
Quarter: 2012Q1

REPORT INFORMATION
  Report Type: 
  Country: None (occurrence: None)
  Receive Date: 20120105
  Receipt Date: 20111227
  Transmission Date: 20120608
  Serious: Yes (Hospitalization)
  Sender: FDA-Public Use
  Company Number: SE-SANOFI-AVENTIS-2011SA052237

PATIENT
  Age: 60 Year
  Sex: Male

DRUGS (17)
  1. CLOPIDOGREL BISULFATE [Suspect]
     Route: 065
  2. NOVORAPID [Concomitant]
     Dates: start: 20110711, end: 20110719
  3. ANGIOTENSIN II ANTAGONISTS [Concomitant]
  4. BETA BLOCKING AGENTS [Concomitant]
  5. DALTEPARIN SODIUM [Concomitant]
     Dosage: DOSE:1500 UNIT(S)
     Dates: start: 20110711
  6. SPIRONOLACTONE [Concomitant]
     Dates: start: 20110713
  7. INSULATARD NPH HUMAN [Concomitant]
     Dates: start: 20110718
  8. PLATELET AGGREGATION INHIBITORS [Concomitant]
  9. OMEPRAZOLE [Concomitant]
     Dates: start: 20110716
  10. LACTULOSE [Concomitant]
     Dates: start: 20110720, end: 20110725
  11. FUROSEMIDE [Concomitant]
     Dates: start: 20110711
  12. ASPIRIN [Concomitant]
     Dates: end: 20110721
  13. IMPORTAL [Concomitant]
     Dates: start: 20110726
  14. HMG COA REDUCTASE INHIBITORS [Concomitant]
  15. METFORMIN HCL [Concomitant]
     Dates: end: 20110611
  16. OXYCONTIN [Concomitant]
     Dates: start: 20110711
  17. SODIUM PICOSULFATE [Concomitant]
     Dates: start: 20110712, end: 20110725

REACTIONS (4)
  - HAEMATURIA [None]
  - PORTAL VEIN THROMBOSIS [None]
  - LIVER DISORDER [None]
  - CONSTIPATION [None]
